FAERS Safety Report 6034565-3 (Version None)
Quarter: 2009Q1

REPORT INFORMATION
  Report Type: 
  Country: None (occurrence: None)
  Receive Date: 20090112
  Receipt Date: 20090106
  Transmission Date: 20090719
  Serious: Yes (Hospitalization, Other)
  Sender: FDA-Public Use
  Company Number: US-PFIZER INC-2008091744

PATIENT
  Sex: Female
  Weight: 90.7 kg

DRUGS (5)
  1. CHANTIX [Suspect]
     Dates: start: 20070501, end: 20080101
  2. EFFEXOR [Concomitant]
     Dates: end: 20070101
  3. CALAN [Concomitant]
     Indication: BLOOD PRESSURE
     Dates: end: 20070101
  4. OMEPRAZOLE [Concomitant]
  5. ULTRAM [Concomitant]

REACTIONS (20)
  - ANXIETY [None]
  - ASTHENIA [None]
  - CHEST PAIN [None]
  - COLD SWEAT [None]
  - CRYING [None]
  - DEPRESSION [None]
  - DIABETES MELLITUS [None]
  - DIZZINESS [None]
  - FATIGUE [None]
  - FEELING ABNORMAL [None]
  - HALLUCINATION [None]
  - HEADACHE [None]
  - HYPERTENSION [None]
  - LOSS OF CONSCIOUSNESS [None]
  - NASAL CAVITY CANCER [None]
  - NEOPLASM [None]
  - PARAESTHESIA [None]
  - SLEEP DISORDER [None]
  - SUICIDAL IDEATION [None]
  - TREMOR [None]
